FAERS Safety Report 7111453-2 (Version None)
Quarter: 2010Q4

REPORT INFORMATION
  Report Type: 
  Country: None (occurrence: None)
  Receive Date: 20101118
  Receipt Date: 20100610
  Transmission Date: 20110411
  Serious: Yes (Other)
  Sender: FDA-Public Use
  Company Number: US-PFIZER INC-2010073679

PATIENT
  Age: 73 Year

DRUGS (1)
  1. ZYVOX [Suspect]
     Indication: PNEUMONIA
     Dosage: 600 MG, 2X/DAY
     Route: 048

REACTIONS (1)
  - THROMBOCYTOPENIA [None]
